FAERS Safety Report 9224325 (Version 1)
Quarter: 2013Q1

REPORT INFORMATION
  Report Type: Spontaneous
  Country: US (occurrence: None)
  Receive Date: 20120917
  Receipt Date: 20120917
  Transmission Date: 20140127
  Serious: Yes (Life-Threatening, Hospitalization)
  Sender: FDA-Public Use
  Company Number: 2011SP053717

PATIENT
  Sex: Female

DRUGS (2)
  1. IMPLANON (68 MG) [Suspect]
     Indication: CONTRACEPTION
     Dosage: SBDE
     Route: 050
  2. DROSPIRENONE W ETHINYLESTRADIOL [Concomitant]

REACTIONS (1)
  - Deep vein thrombosis [None]
